FAERS Safety Report 7298264-2 (Version None)
Quarter: 2011Q1

REPORT INFORMATION
  Report Type: 
  Country: None (occurrence: None)
  Receive Date: 20110217
  Receipt Date: 20100310
  Transmission Date: 20110831
  Serious: Yes (Other)
  Sender: FDA-Public Use
  Company Number: US-PFIZER INC-2010008527

PATIENT
  Sex: Female

DRUGS (5)
  1. TOBRADEX [Concomitant]
     Dosage: UNK
  2. SIMVASTATIN [Concomitant]
     Dosage: UNK
  3. AZOPT [Concomitant]
     Dosage: UNK
     Route: 047
  4. COMBIGAN [Concomitant]
     Dosage: UNK
     Route: 047
  5. XALATAN [Suspect]
     Indication: GLAUCOMA
     Dosage: 1 DROP IN LEFT EYE AS NEEDED
     Route: 047
     Dates: start: 20070101

REACTIONS (3)
  - PERIORBITAL OEDEMA [None]
  - EYE IRRITATION [None]
  - OCULAR HYPERAEMIA [None]
